FAERS Safety Report 13550422 (Version 1)
Quarter: 2017Q2

REPORT INFORMATION
  Report Type: Spontaneous
  Country: US (occurrence: US)
  Receive Date: 20170516
  Receipt Date: 20170516
  Transmission Date: 20170830
  Serious: Yes (Hospitalization)
  Sender: FDA-Public Use
  Company Number: None

PATIENT
  Age: 71 Year
  Sex: Male
  Weight: 88.1 kg

DRUGS (8)
  1. DIAZEPAM. [Suspect]
     Active Substance: DIAZEPAM
     Indication: ANXIETY
     Dosage: CHRONIC HOME MED   Q6HRS PRN
     Route: 048
  2. PERCOCET [Suspect]
     Active Substance: ACETAMINOPHEN\OXYCODONE HYDROCHLORIDE
     Indication: PAIN
     Dosage: CHRONIC HOME MED  5/325MG  Q6HRS PRN
     Route: 048
  3. DOCUSATE [Concomitant]
     Active Substance: DOCUSATE
  4. 1 ANTUS [Concomitant]
  5. ALPRAZOLAM 0.5MG [Suspect]
     Active Substance: ALPRAZOLAM
  6. LIPITOR [Concomitant]
     Active Substance: ATORVASTATIN CALCIUM
  7. COREG [Concomitant]
     Active Substance: CARVEDILOL
  8. NORTRIPTYLINE [Concomitant]
     Active Substance: NORTRIPTYLINE

REACTIONS (1)
  - Respiratory failure [None]

NARRATIVE: CASE EVENT DATE: 20170402
